FAERS Safety Report 10816863 (Version 2)
Quarter: 2015Q2

REPORT INFORMATION
  Report Type: Spontaneous
  Country: IT (occurrence: IT)
  Receive Date: 20150218
  Receipt Date: 20150417
  Transmission Date: 20150821
  Serious: Yes (Other)
  Sender: FDA-Public Use
  Company Number: IT-PFIZER INC-2015062176

PATIENT
  Age: 4 Year
  Sex: Female

DRUGS (1)
  1. CEFODOX [Suspect]
     Active Substance: CEFPODOXIME PROXETIL
     Indication: PHARYNGOTONSILLITIS
     Dosage: 6 ML, DAILY
     Route: 048
     Dates: start: 20141124, end: 20141202

REACTIONS (1)
  - Generalised erythema [Recovered/Resolved]

NARRATIVE: CASE EVENT DATE: 20141202
